FAERS Safety Report 5660273-4 (Version None)
Quarter: 2008Q1

REPORT INFORMATION
  Report Type: 
  Country: None (occurrence: None)
  Receive Date: 20080212
  Receipt Date: 20070129
  Transmission Date: 20080703
  Serious: Yes (Other)
  Sender: FDA-Public Use
  Company Number: MC200700072

PATIENT
  Sex: Female

DRUGS (3)
  1. ANGIOMAX [Suspect]
     Indication: PERCUTANEOUS CORONARY INTERVENTION
     Dosage: 12.8 ML, BOLUS, IV BOLUS; 24 ML, HR, INTRAVENOUS
     Route: 040
     Dates: start: 20070123, end: 20070123
  2. ANGIOMAX [Suspect]
     Indication: PERCUTANEOUS CORONARY INTERVENTION
     Dosage: 12.8 ML, BOLUS, IV BOLUS; 24 ML, HR, INTRAVENOUS
     Route: 040
     Dates: start: 20070123, end: 20070123
  3. CONTRAST MEDIA() [Suspect]
     Dosage: INTRAVENOUS
     Route: 042
     Dates: start: 20070123, end: 20070123

REACTIONS (1)
  - ANAPHYLACTIC REACTION [None]
